FAERS Safety Report 6591402-6 (Version None)
Quarter: 2010Q1

REPORT INFORMATION
  Report Type: 
  Country: None (occurrence: None)
  Receive Date: 20100219
  Receipt Date: 20100212
  Transmission Date: 20100710
  Serious: Yes (Other)
  Sender: FDA-Public Use
  Company Number: BR-B.I. PHARMACEUTICALS,INC./RIDGEFIELD-2010-BR-00158BR

PATIENT
  Sex: Female

DRUGS (2)
  1. ATENSINA [Suspect]
     Indication: BLOOD PRESSURE INCREASED
     Dosage: REFER TO NARRATIVE
     Route: 048
  2. OSSOPAN [Concomitant]
     Indication: OSTEOPOROSIS
     Dosage: NR

REACTIONS (1)
  - BLOOD PRESSURE INCREASED [None]
